FAERS Safety Report 23932935 (Version 1)
Quarter: 2024Q2

REPORT INFORMATION
  Report Type: Spontaneous
  Country: CN (occurrence: CN)
  Receive Date: 20240603
  Receipt Date: 20240603
  Transmission Date: 20240715
  Serious: Yes (Hospitalization, Other)
  Sender: FDA-Public Use
  Company Number: CN-BAYER-2024A075307

PATIENT
  Age: 53 Year
  Sex: Male
  Weight: 55 kg

DRUGS (1)
  1. NEXAVAR [Suspect]
     Active Substance: SORAFENIB
     Indication: Hepatic cancer
     Dosage: 0.4 G, BID
     Route: 048
     Dates: start: 20240318, end: 20240419

REACTIONS (7)
  - Cerebral infarction [None]
  - Altered state of consciousness [None]
  - Urinary incontinence [None]
  - Pneumonia aspiration [None]
  - Myelosuppression [Not Recovered/Not Resolved]
  - Heart rate increased [None]
  - Respiratory rate increased [None]

NARRATIVE: CASE EVENT DATE: 20240322
